FAERS Safety Report 22255647 (Version 1)
Quarter: 2023Q2

REPORT INFORMATION
  Report Type: Spontaneous
  Country: US (occurrence: None)
  Receive Date: 20230426
  Receipt Date: 20230426
  Transmission Date: 20230722
  Serious: Yes (Hospitalization)
  Sender: FDA-Public Use
  Company Number: None

PATIENT
  Age: 65 Year
  Sex: Male
  Weight: 67.95 kg

DRUGS (17)
  1. REPATHA [Suspect]
     Active Substance: EVOLOCUMAB
     Indication: Arteriosclerosis coronary artery
     Dosage: OTHER FREQUENCY : MONTHLY;?
     Route: 058
     Dates: start: 20210910
  2. REPATHA [Suspect]
     Active Substance: EVOLOCUMAB
     Indication: Arteriosclerosis
  3. ACETAMINOPHEN/COD #3 (300/30MG) [Concomitant]
     Dates: start: 20211012
  4. AMLODIPINE [Concomitant]
     Active Substance: AMLODIPINE BESYLATE
     Dates: start: 20230327
  5. ASPIRIN [Concomitant]
     Active Substance: ASPIRIN
     Dates: start: 20230407
  6. FOLIC ACID [Concomitant]
     Active Substance: FOLIC ACID
     Dates: start: 20230407
  7. CARISOPRODOL [Concomitant]
     Active Substance: CARISOPRODOL
     Dates: start: 20211012
  8. CLOPIDOGREL [Concomitant]
     Active Substance: CLOPIDOGREL BISULFATE
     Dates: start: 20210406
  9. EZETIMIBE [Concomitant]
     Active Substance: EZETIMIBE
     Dates: start: 20230407
  10. FUROSEMIDE [Concomitant]
     Active Substance: FUROSEMIDE
     Dates: start: 20220228
  11. HYDRALAZINE [Concomitant]
     Active Substance: HYDRALAZINE HYDROCHLORIDE
     Dates: start: 20220209
  12. HCTZ 12.5MG [Concomitant]
     Dates: start: 20220228
  13. METOPROLOL ER SUCCINATE 50MG [Concomitant]
     Dates: start: 20210714
  14. OMEPRAZOLE [Concomitant]
     Active Substance: OMEPRAZOLE
     Dates: start: 20210802, end: 20230327
  15. ONDANSETRON [Concomitant]
     Active Substance: ONDANSETRON
     Dates: start: 20210915
  16. RAMELTEON [Concomitant]
     Active Substance: RAMELTEON
     Dates: start: 20220401
  17. ROPINIROLE [Concomitant]
     Active Substance: ROPINIROLE
     Dates: start: 20220103

REACTIONS (2)
  - Cerebrovascular accident [None]
  - Arterial occlusive disease [None]

NARRATIVE: CASE EVENT DATE: 20230403
